FAERS Safety Report 4983507-8 (Version None)
Quarter: 2006Q2

REPORT INFORMATION
  Report Type: 
  Country: None (occurrence: None)
  Receive Date: 20060419
  Receipt Date: 20060329
  Transmission Date: 20061013
  Serious: Yes (Hospitalization)
  Sender: FDA-Public Use
  Company Number: DE200604000849

PATIENT
  Sex: Female
  Weight: 59.5 kg

DRUGS (4)
  1. CYMBALTA [Suspect]
     Indication: PAIN IN EXTREMITY
     Dosage: SEE IMAGE, ORAL
     Route: 048
     Dates: start: 20050830, end: 20050912
  2. CYMBALTA [Suspect]
     Indication: PAIN IN EXTREMITY
     Dosage: SEE IMAGE, ORAL
     Route: 048
     Dates: start: 20050913, end: 20051028
  3. CLOZAPINE [Concomitant]
  4. QUETIAPINE FUMARATE [Concomitant]

REACTIONS (3)
  - ANTIPSYCHOTIC DRUG LEVEL INCREASED [None]
  - DRUG TOXICITY [None]
  - FATIGUE [None]
